FAERS Safety Report 10234541 (Version 2)
Quarter: 2014Q2

REPORT INFORMATION
  Report Type: Spontaneous
  Country: DE (occurrence: DE)
  Receive Date: 20140613
  Receipt Date: 20140626
  Transmission Date: 20141212
  Serious: Yes (Other)
  Sender: FDA-Public Use
  Company Number: DE-AMGEN-DEUSP2014043655

PATIENT
  Age: 43 Year
  Sex: Female
  Weight: 64 kg

DRUGS (9)
  1. NEULASTA [Suspect]
     Indication: PRODUCT USED FOR UNKNOWN INDICATION
     Dosage: 6 MG D1, Q2WK
     Route: 058
     Dates: start: 20140307
  2. DOCETAXEL [Suspect]
     Indication: BREAST CANCER
     Dosage: 140 MG, Q14
     Route: 042
     Dates: start: 20140508
  3. TRASTUZUMAB [Concomitant]
     Indication: BREAST CANCER
     Dosage: 260 MG, Q14
     Route: 042
     Dates: start: 20140508
  4. EPIRUBICIN [Concomitant]
     Indication: BREAST CANCER
     Dosage: 1200 MG, 14
     Route: 042
     Dates: start: 20140306
  5. CYCLOPHOSPHAM [Concomitant]
     Indication: BREAST CANCER
     Dosage: 2010 MG, Q21
     Route: 042
     Dates: start: 20140306
  6. METOPROLOL [Concomitant]
     Dosage: UNK, PER USE
     Dates: start: 20140306
  7. NEUROTRAT S [Concomitant]
     Dosage: 1/TBL, UNK
     Dates: start: 20140224
  8. CIPROFLOXACIN [Concomitant]
     Dosage: D5-12, UNK
     Dates: start: 20140310
  9. BELOC-ZOC COMP [Concomitant]
     Dosage: 47,5 MG, UNK
     Dates: start: 20140403

REACTIONS (3)
  - Alveolitis [Not Recovered/Not Resolved]
  - Atypical pneumonia [Not Recovered/Not Resolved]
  - Cough [Not Recovered/Not Resolved]
